FAERS Safety Report 5026953-9 (Version None)
Quarter: 2006Q2

REPORT INFORMATION
  Report Type: 
  Country: None (occurrence: None)
  Receive Date: 20060615
  Receipt Date: 20060607
  Transmission Date: 20061013
  Serious: Yes (Other)
  Sender: FDA-Public Use
  Company Number: US-AVENTIS-200615068US

PATIENT

DRUGS (9)
  1. LANTUS [Suspect]
     Indication: DIABETES MELLITUS NON-INSULIN-DEPENDENT
     Dosage: DOSE UNIT: UNITS
     Dates: start: 20050901
  2. OPTICLIK (INSULIN INJECTION PEN) [Suspect]
     Indication: DIABETES MELLITUS NON-INSULIN-DEPENDENT
     Dosage: DOSE: UNKNOWN
     Dates: start: 20050901
  3. NOVOLOG [Concomitant]
     Dosage: DOSE: UNKNOWN
  4. SLO-MAG [Concomitant]
     Dosage: DOSE: UNKNOWN
  5. PROGRAF [Concomitant]
     Dosage: DOSE: UNKNOWN
  6. PRILOSEC [Concomitant]
     Dosage: DOSE: UNKNOWN
  7. FOSAMAX [Concomitant]
     Dosage: DOSE: UNKNOWN
  8. LASIX [Concomitant]
     Dosage: DOSE: UNKNOWN
  9. NASAL PREPARATIONS [Concomitant]
     Dosage: DOSE: UNKNOWN

REACTIONS (5)
  - ASCITES [None]
  - BLOOD GLUCOSE DECREASED [None]
  - BLOOD GLUCOSE INCREASED [None]
  - DIARRHOEA [None]
  - PLEURAL EFFUSION [None]
